FAERS Safety Report 8223776-4 (Version None)
Quarter: 2012Q1

REPORT INFORMATION
  Report Type: 
  Country: None (occurrence: None)
  Receive Date: 20120316
  Receipt Date: 20120302
  Transmission Date: 20120608
  Serious: Yes (Other)
  Sender: FDA-Public Use
  Company Number: 2012SP012030

PATIENT
  Age: 55 Year
  Sex: Female

DRUGS (5)
  1. CANDESARTAN CILEXETIL AND HYDROCHLOROTHIAZIDE [Concomitant]
  2. INDERAL LA [Concomitant]
  3. AERIUS (DESLORATADINE /013984501/) [Suspect]
     Indication: URTICARIA
     Dosage: 5 MG;QD;PO
     Route: 048
  4. AERIUS (DESLORATADINE /013984501/) [Suspect]
     Indication: RHINITIS ALLERGIC
     Dosage: 5 MG;QD;PO
     Route: 048
  5. ESTRADIOL [Concomitant]

REACTIONS (4)
  - PALPITATIONS [None]
  - ANXIETY [None]
  - AGITATION [None]
  - CHEST DISCOMFORT [None]
